FAERS Safety Report 14427007 (Version 1)
Quarter: 2018Q1

REPORT INFORMATION
  Report Type: Report from Study
  Country: US (occurrence: US)
  Receive Date: 20180123
  Receipt Date: 20180123
  Transmission Date: 20180509
  Serious: Yes (Other)
  Sender: FDA-Public Use
  Company Number: US-BAUSCH-BL-2018-002102

PATIENT

DRUGS (1)
  1. MINOCYCLINE [Suspect]
     Active Substance: MINOCYCLINE\MINOCYCLINE HYDROCHLORIDE
     Indication: STENOTROPHOMONAS INFECTION
     Route: 065

REACTIONS (3)
  - Treatment failure [Unknown]
  - Condition aggravated [Unknown]
  - Stenotrophomonas infection [Unknown]
